FAERS Safety Report 21997135 (Version 1)
Quarter: 2023Q1

REPORT INFORMATION
  Report Type: Spontaneous
  Country: JP (occurrence: JP)
  Receive Date: 20230215
  Receipt Date: 20230215
  Transmission Date: 20230418
  Serious: Yes (Other)
  Sender: FDA-Public Use
  Company Number: JP-SCALL-2022-JP-140197

PATIENT
  Sex: 0

DRUGS (1)
  1. DUTASTERIDE [Suspect]
     Active Substance: DUTASTERIDE
     Indication: Benign prostatic hyperplasia
     Dosage: 0.5MG, QD
     Route: 048

REACTIONS (1)
  - Cerebral infarction [Unknown]

NARRATIVE: CASE EVENT DATE: 20220929
